FAERS Safety Report 5368120-5 (Version None)
Quarter: 2007Q2

REPORT INFORMATION
  Report Type: 
  Country: None (occurrence: None)
  Receive Date: 20070622
  Receipt Date: 20070611
  Transmission Date: 20071010
  Serious: Yes (Hospitalization)
  Sender: FDA-Public Use
  Company Number: US-PFIZER INC-2005152485

PATIENT
  Sex: Male
  Weight: 87.7 kg

DRUGS (6)
  1. SUTENT [Suspect]
     Indication: METASTATIC RENAL CELL CARCINOMA
     Route: 048
     Dates: start: 20050615, end: 20050712
  2. SUTENT [Suspect]
     Route: 048
     Dates: start: 20050727, end: 20051115
  3. SUTENT [Suspect]
     Route: 048
     Dates: start: 20051129, end: 20051227
  4. GEFITINIB [Suspect]
     Indication: METASTATIC RENAL CELL CARCINOMA
     Route: 048
  5. PRILOSEC [Concomitant]
     Route: 048
  6. SYNTHROID [Concomitant]
     Indication: HYPOTHYROIDISM
     Route: 048

REACTIONS (1)
  - SINUS TACHYCARDIA [None]
